FAERS Safety Report 9356511 (Version 3)
Quarter: 2013Q3

REPORT INFORMATION
  Report Type: Spontaneous
  Country: US (occurrence: US)
  Receive Date: 20130619
  Receipt Date: 20130802
  Transmission Date: 20140515
  Serious: Yes (Hospitalization)
  Sender: FDA-Public Use
  Company Number: US-BAXTER-2013BAX022126

PATIENT
  Age: 72 Year
  Sex: Male
  Weight: 112 kg

DRUGS (7)
  1. GAMMAGARD LIQUID [Suspect]
     Indication: WALDENSTROM^S MACROGLOBULINAEMIA
     Route: 042
     Dates: start: 20130607, end: 20130607
  2. GAMMAGARD LIQUID [Suspect]
     Dates: start: 201010, end: 201010
  3. GAMMAGARD LIQUID [Suspect]
     Dates: start: 201102, end: 201102
  4. LANTUS [Concomitant]
     Indication: TYPE 2 DIABETES MELLITUS
     Route: 058
  5. INSULIN [Concomitant]
     Indication: TYPE 2 DIABETES MELLITUS
     Dosage: SLIDING SCALE
  6. METOPROLOL [Concomitant]
     Indication: PRODUCT USED FOR UNKNOWN INDICATION
     Route: 048
  7. LISINOPRIL [Concomitant]
     Indication: PRODUCT USED FOR UNKNOWN INDICATION
     Route: 048

REACTIONS (3)
  - Pyrexia [Recovered/Resolved]
  - Confusional state [Unknown]
  - Fatigue [Unknown]
